FAERS Safety Report 9015304 (Version 1)
Quarter: 2013Q1

REPORT INFORMATION
  Report Type: Spontaneous
  Country: US (occurrence: None)
  Receive Date: 20130109
  Receipt Date: 20130109
  Transmission Date: 20140127
  Serious: Yes (Other)
  Sender: FDA-Public Use
  Company Number: None

PATIENT
  Sex: Male
  Weight: 69.4 kg

DRUGS (1)
  1. OXCARBAZEPINE [Suspect]
     Dosage: 1350MG/DAY  ORALLY
     Route: 048
     Dates: start: 2009

REACTIONS (1)
  - Convulsion [None]
